FAERS Safety Report 23073196 (Version 2)
Quarter: 2023Q4

REPORT INFORMATION
  Report Type: Report from Study
  Country: US (occurrence: US)
  Receive Date: 20231017
  Receipt Date: 20231101
  Transmission Date: 20240109
  Serious: Yes (Hospitalization, Other)
  Sender: FDA-Public Use
  Company Number: US-GILEAD-2023-0647259

PATIENT
  Age: 7 Year
  Sex: Female

DRUGS (1)
  1. AZTREONAM LYSINE [Suspect]
     Active Substance: AZTREONAM LYSINE
     Indication: Respiratory disorder
     Dosage: 28 DAYS ON 28 DAYS OFF
     Route: 065
     Dates: start: 20220817

REACTIONS (4)
  - Pneumonia [Unknown]
  - Nasal inflammation [Unknown]
  - Intentional dose omission [Recovered/Resolved]
  - Off label use [Not Recovered/Not Resolved]

NARRATIVE: CASE EVENT DATE: 20230913
